FAERS Safety Report 6294318-8 (Version None)
Quarter: 2009Q3

REPORT INFORMATION
  Report Type: 
  Country: None (occurrence: None)
  Receive Date: 20090803
  Receipt Date: 20090722
  Transmission Date: 20100115
  Serious: Yes (Life-Threatening)
  Sender: FDA-Public Use
  Company Number: CN-PFIZER INC-2009247062

PATIENT
  Age: 58 Year

DRUGS (1)
  1. ZITHROMAX [Suspect]
     Dosage: 0.5 G, 1X/DAY
     Route: 042
     Dates: start: 20090713, end: 20090714

REACTIONS (2)
  - ANAPHYLACTIC SHOCK [None]
  - DISCOMFORT [None]
